FAERS Safety Report 18658254 (Version 1)
Quarter: 2020Q4

REPORT INFORMATION
  Report Type: Spontaneous
  Country: KR (occurrence: KR)
  Receive Date: 20201223
  Receipt Date: 20201223
  Transmission Date: 20210114
  Serious: No
  Sender: FDA-Public Use
  Company Number: KR-TOLMAR, INC.-20KR024484

PATIENT

DRUGS (3)
  1. METRONIDAZOLE. [Suspect]
     Active Substance: METRONIDAZOLE
     Indication: PERIORAL DERMATITIS
     Dosage: 500 MG, QD
     Route: 048
  2. METRONIDAZOLE. [Suspect]
     Active Substance: METRONIDAZOLE
     Dosage: 250 MG, QD
     Route: 048
  3. CALCINEURIN INHIBITORS [Suspect]
     Active Substance: UNSPECIFIED INGREDIENT
     Indication: PERIORAL DERMATITIS
     Route: 061

REACTIONS (1)
  - Diarrhoea [Recovered/Resolved]
